FAERS Safety Report 14849837 (Version 1)
Quarter: 2018Q2

REPORT INFORMATION
  Report Type: Spontaneous
  Country: US (occurrence: US)
  Receive Date: 20180504
  Receipt Date: 20180504
  Transmission Date: 20180711
  Serious: Yes (Hospitalization)
  Sender: FDA-Public Use
  Company Number: US-ACTELION-A-NJ2018-171487

PATIENT
  Age: 66 Year
  Sex: Male

DRUGS (2)
  1. ADCIRCA [Concomitant]
     Active Substance: TADALAFIL
  2. OPSUMIT [Suspect]
     Active Substance: MACITENTAN
     Indication: PULMONARY HYPERTENSION
     Dosage: 10 MG, UNK
     Route: 048

REACTIONS (8)
  - Raynaud^s phenomenon [Unknown]
  - Idiopathic pulmonary fibrosis [Unknown]
  - Pulmonary arterial hypertension [Unknown]
  - Nasal congestion [Unknown]
  - Emphysema [Unknown]
  - Myocardial ischaemia [Unknown]
  - Chronic obstructive pulmonary disease [Unknown]
  - Scleroderma [Unknown]
